FAERS Safety Report 16826804 (Version 3)
Quarter: 2019Q4

REPORT INFORMATION
  Report Type: Spontaneous
  Country: US (occurrence: US)
  Receive Date: 20190919
  Receipt Date: 20191022
  Transmission Date: 20200122
  Serious: Yes (Other)
  Sender: FDA-Public Use
  Company Number: US-BAYER-2019-166528

PATIENT
  Age: 19 Year
  Sex: Female

DRUGS (1)
  1. SKYLA [Suspect]
     Active Substance: LEVONORGESTREL
     Indication: CONTRACEPTION
     Dosage: 14 MCG/24HR, CONT
     Route: 015
     Dates: start: 20150916, end: 201910

REACTIONS (4)
  - Complication of device removal [None]
  - Device use issue [Recovered/Resolved]
  - Device breakage [Recovered/Resolved]
  - Device use error [None]

NARRATIVE: CASE EVENT DATE: 20180916
